FAERS Safety Report 9878565 (Version 1)
Quarter: 2014Q1

REPORT INFORMATION
  Report Type: Spontaneous
  Country: US (occurrence: US)
  Receive Date: 20140206
  Receipt Date: 20140206
  Transmission Date: 20141002
  Serious: No
  Sender: FDA-Public Use
  Company Number: US-ALLERGAN-1312651US

PATIENT
  Sex: Female

DRUGS (2)
  1. BOTOX [Suspect]
     Indication: SKIN WRINKLING
     Dosage: 46 UNITS, SINGLE
     Route: 030
     Dates: start: 20130816, end: 20130816
  2. BOTOX [Suspect]
     Indication: SKIN WRINKLING

REACTIONS (5)
  - Acne [Unknown]
  - Headache [Unknown]
  - Injection site bruising [Unknown]
  - Injection site swelling [Unknown]
  - Headache [Unknown]
